FAERS Safety Report 23173996 (Version 1)
Quarter: 2023Q4

REPORT INFORMATION
  Report Type: Spontaneous
  Country: US (occurrence: US)
  Receive Date: 20231112
  Receipt Date: 20231112
  Transmission Date: 20240110
  Serious: Yes (Death, Other)
  Sender: FDA-Public Use
  Company Number: US-GLAXOSMITHKLINE-US2023154909

PATIENT

DRUGS (1)
  1. TRELEGY ELLIPTA [Suspect]
     Active Substance: FLUTICASONE FUROATE\UMECLIDINIUM BROMIDE\VILANTEROL TRIFENATATE
     Indication: Chronic obstructive pulmonary disease
     Dosage: UNK, 100/62.5/25MCG INH 30
     Dates: start: 202211, end: 202311

REACTIONS (6)
  - Cardiac failure congestive [Fatal]
  - Constipation [Fatal]
  - Lung disorder [Fatal]
  - Respiratory disorder [Fatal]
  - Spinal fracture [Fatal]
  - Chronic obstructive pulmonary disease [Fatal]
